FAERS Safety Report 5489528-3 (Version None)
Quarter: 2007Q4

REPORT INFORMATION
  Report Type: 
  Country: None (occurrence: None)
  Receive Date: 20071009
  Receipt Date: 20060818
  Transmission Date: 20080405
  Serious: Yes (Other)
  Sender: FDA-Public Use
  Company Number: PHEH2006US10574

PATIENT
  Sex: Female

DRUGS (5)
  1. COMBIPATCH [Suspect]
     Indication: HORMONE REPLACEMENT THERAPY
     Dosage: TRANSDERMAL
     Route: 062
     Dates: start: 19910101, end: 20030101
  2. PREMPRO [Suspect]
  3. PREMARIN [Suspect]
  4. PROVERA [Suspect]
  5. PREFEST [Suspect]

REACTIONS (3)
  - BODY DYSMORPHIC DISORDER [None]
  - BREAST CANCER [None]
  - PAIN [None]
